FAERS Safety Report 12854878 (Version 2)
Quarter: 2018Q2

REPORT INFORMATION
  Report Type: Report from Study
  Country: TW (occurrence: TW)
  Receive Date: 20161017
  Receipt Date: 20180531
  Transmission Date: 20180711
  Serious: Yes (Death, Hospitalization)
  Sender: FDA-Public Use
  Company Number: TW-B.I. PHARMACEUTICALS,INC./RIDGEFIELD-2016-BI-53053BI

PATIENT
  Age: 41 Year
  Sex: Female
  Weight: 58.2 kg

DRUGS (8)
  1. AFATINIB [Suspect]
     Active Substance: AFATINIB
     Indication: NON-SMALL CELL LUNG CANCER
     Route: 048
     Dates: start: 20160726, end: 20160814
  2. FAMOTIDINE. [Concomitant]
     Active Substance: FAMOTIDINE
     Indication: PROPHYLAXIS
     Route: 048
     Dates: start: 20160803, end: 20160817
  3. FLUCORT-F [Concomitant]
     Indication: PRODUCT USED FOR UNKNOWN INDICATION
     Route: 048
     Dates: start: 20160804, end: 20160804
  4. OSIMERTINIB. [Concomitant]
     Active Substance: OSIMERTINIB
     Indication: LUNG NEOPLASM MALIGNANT
     Route: 048
     Dates: start: 20150815, end: 20150816
  5. BI 836845 [Suspect]
     Active Substance: INVESTIGATIONAL PRODUCT
     Indication: NON-SMALL CELL LUNG CANCER
     Dosage: STRENGTH: 10MG/ML
     Route: 042
     Dates: start: 20160726, end: 20160809
  6. CODEINE PHOSPHATE [Concomitant]
     Active Substance: CODEINE PHOSPHATE
     Indication: COUGH
     Route: 042
     Dates: start: 20150815, end: 20150815
  7. BENZONATATE. [Concomitant]
     Active Substance: BENZONATATE
     Indication: PRODUCT USED FOR UNKNOWN INDICATION
     Route: 048
  8. DIPHENHYDRAMINE HCL [Concomitant]
     Active Substance: DIPHENHYDRAMINE HYDROCHLORIDE
     Indication: ALLERGY PROPHYLAXIS
     Dosage: DAILY DOSE: 30 MG/ML/AMP STAT
     Route: 042
     Dates: start: 20160802, end: 20160802

REACTIONS (11)
  - Pyrexia [Unknown]
  - Dyspnoea [Unknown]
  - Hypotension [Unknown]
  - Wound complication [Unknown]
  - Thrombocytopenia [Unknown]
  - Pleural effusion [Unknown]
  - Dizziness [Unknown]
  - Respiratory failure [Fatal]
  - Lung infiltration [Unknown]
  - Anaemia [Unknown]
  - Hypokalaemia [Unknown]

NARRATIVE: CASE EVENT DATE: 20160802
